FAERS Safety Report 6366711-6 (Version None)
Quarter: 2009Q3

REPORT INFORMATION
  Report Type: 
  Country: None (occurrence: None)
  Receive Date: 20090921
  Receipt Date: 20090914
  Transmission Date: 20100115
  Serious: Yes (Death, Hospitalization)
  Sender: FDA-Public Use
  Company Number: IN-ELI_LILLY_AND_COMPANY-IN200909003108

PATIENT
  Age: 52 Year
  Sex: Male
  Weight: 80 kg

DRUGS (4)
  1. XIGRIS [Suspect]
     Indication: MULTI-ORGAN FAILURE
     Dosage: 9.6 ML/HR
     Route: 042
     Dates: start: 20090914
  2. DOPAMINE HCL [Concomitant]
  3. NORADRENALINE [Concomitant]
  4. DOBUTAMINE HCL [Concomitant]

REACTIONS (1)
  - CARDIAC ARREST [None]
